FAERS Safety Report 22014197 (Version 3)
Quarter: 2023Q1

REPORT INFORMATION
  Report Type: Spontaneous
  Country: US (occurrence: US)
  Receive Date: 20230221
  Receipt Date: 20230314
  Transmission Date: 20230418
  Serious: Yes (Other)
  Sender: FDA-Public Use
  Company Number: US-BRISTOL-MYERS SQUIBB COMPANY-2023-021663

PATIENT
  Age: 72 Year
  Sex: Male
  Weight: 103.42 kg

DRUGS (2)
  1. REVLIMID [Suspect]
     Active Substance: LENALIDOMIDE
     Indication: Plasma cell myeloma
     Dosage: D1-21 Q28 DAYS
     Route: 048
     Dates: start: 20200604, end: 20230309
  2. REVLIMID [Suspect]
     Active Substance: LENALIDOMIDE
     Dosage: DAILY 1-12 IN 28 DAY CYCLE
     Route: 048
     Dates: start: 20200704

REACTIONS (5)
  - Drug ineffective [Recovering/Resolving]
  - Light chain analysis abnormal [Recovering/Resolving]
  - Intentional product use issue [Unknown]
  - Plasma cell myeloma [Not Recovered/Not Resolved]
  - COVID-19 [Unknown]

NARRATIVE: CASE EVENT DATE: 20230223
